FAERS Safety Report 6742126-3 (Version None)
Quarter: 2010Q2

REPORT INFORMATION
  Report Type: 
  Country: None (occurrence: None)
  Receive Date: 20100524
  Receipt Date: 20100524
  Transmission Date: 20101027
  Serious: Yes (Death)
  Sender: FDA-Public Use
  Company Number: 2010EN000159

PATIENT
  Sex: Male

DRUGS (1)
  1. ABELCET [Suspect]
     Indication: ASPERGILLOSIS

REACTIONS (1)
  - DRUG INEFFECTIVE [None]
